FAERS Safety Report 16012157 (Version 1)
Quarter: 2019Q1

REPORT INFORMATION
  Report Type: Spontaneous
  Country: US (occurrence: US)
  Receive Date: 20190227
  Receipt Date: 20190227
  Transmission Date: 20190418
  Serious: No
  Sender: FDA-Public Use
  Company Number: US-TEVA-2019-US-1008340

PATIENT

DRUGS (1)
  1. VENLAFAXINE HCL TEVA [Suspect]
     Active Substance: VENLAFAXINE HYDROCHLORIDE
     Route: 065

REACTIONS (1)
  - Urticaria [Unknown]
